FAERS Safety Report 4615523-X (Version None)
Quarter: 2005Q1

REPORT INFORMATION
  Report Type: 
  Country: None (occurrence: None)
  Receive Date: 20050317
  Receipt Date: 20050308
  Transmission Date: 20050727
  Serious: Yes (Other)
  Sender: FDA-Public Use
  Company Number: 2004107785

PATIENT
  Age: 54 Year
  Sex: Male
  Weight: 81.6475 kg

DRUGS (9)
  1. CELEBREX [Suspect]
     Indication: ARTHRALGIA
     Dosage: SEE IMAGE
     Route: 048
     Dates: start: 20020514, end: 20041119
  2. CELEBREX [Suspect]
     Indication: ARTHRITIS
     Dosage: SEE IMAGE
     Route: 048
     Dates: start: 20020514, end: 20041119
  3. CELEBREX [Suspect]
     Indication: NECK PAIN
     Dosage: SEE IMAGE
     Route: 048
     Dates: start: 20020514, end: 20041119
  4. CELEBREX [Suspect]
     Indication: PAIN
     Dosage: SEE IMAGE
     Route: 048
     Dates: start: 20020514, end: 20041119
  5. CELEBREX [Suspect]
     Indication: ARTHRALGIA
     Dosage: SEE IMAGE
     Route: 048
     Dates: start: 20041129
  6. CELEBREX [Suspect]
     Indication: ARTHRITIS
     Dosage: SEE IMAGE
     Route: 048
     Dates: start: 20041129
  7. CELEBREX [Suspect]
     Indication: NECK PAIN
     Dosage: SEE IMAGE
     Route: 048
     Dates: start: 20041129
  8. CELEBREX [Suspect]
     Indication: PAIN
     Dosage: SEE IMAGE
     Route: 048
     Dates: start: 20041129
  9. QUININE (QUININE) [Concomitant]

REACTIONS (2)
  - PAIN [None]
  - SURGERY [None]
